FAERS Safety Report 6618580-4 (Version None)
Quarter: 2010Q1

REPORT INFORMATION
  Report Type: 
  Country: None (occurrence: None)
  Receive Date: 20100308
  Receipt Date: 20100224
  Transmission Date: 20100710
  Serious: Yes (Other)
  Sender: FDA-Public Use
  Company Number: US-PFIZER INC-2010018902

PATIENT
  Sex: Female
  Weight: 113.39 kg

DRUGS (7)
  1. CHANTIX [Suspect]
     Indication: SMOKING CESSATION THERAPY
     Dosage: UNK
     Route: 048
     Dates: start: 20100202
  2. EFFEXOR [Concomitant]
  3. ABILIFY [Concomitant]
  4. XANAX [Concomitant]
     Indication: ANXIETY
  5. MELATONIN [Concomitant]
     Indication: INSOMNIA
  6. VICODIN [Concomitant]
  7. IBUPROFEN [Concomitant]

REACTIONS (3)
  - AGITATION [None]
  - BLOOD GLUCOSE INCREASED [None]
  - THYROID FUNCTION TEST ABNORMAL [None]
